FAERS Safety Report 8844853 (Version 1)
Quarter: 2012Q4

REPORT INFORMATION
  Report Type: 
  Country: US (occurrence: US)
  Receive Date: 20121017
  Receipt Date: 20121017
  Transmission Date: 20130627
  Serious: No
  Sender: FDA-Public Use
  Company Number: US-TEVA-364963USA

PATIENT
  Age: 31 Year
  Sex: Female
  Weight: 68.1 kg

DRUGS (4)
  1. PLAN B ONE-STEP [Suspect]
     Indication: POST COITAL CONTRACEPTION
     Dosage: 1.5 Milligram Daily;
     Route: 048
     Dates: start: 20120924, end: 20120924
  2. AVONEX [Concomitant]
     Indication: MULTIPLE SCLEROSIS
  3. CLONAZEPAM [Concomitant]
     Indication: ANXIETY
  4. ST. JOHN^S WORT [Concomitant]
     Indication: DEPRESSION

REACTIONS (2)
  - Drug ineffective [Unknown]
  - Pregnancy after post coital contraception [Unknown]
